FAERS Safety Report 7413177-0 (Version None)
Quarter: 2011Q2

REPORT INFORMATION
  Report Type: 
  Country: None (occurrence: None)
  Receive Date: 20110413
  Receipt Date: 20110411
  Transmission Date: 20111010
  Serious: Yes (Hospitalization, Other)
  Sender: FDA-Public Use
  Company Number: JP-PFIZER INC-2010176094

PATIENT
  Age: 90 Year
  Sex: Female

DRUGS (3)
  1. ZOVIRAX [Concomitant]
     Indication: POST HERPETIC NEURALGIA
     Dosage: UNK
     Dates: start: 20101201, end: 20101201
  2. LYRICA [Suspect]
     Indication: OCCIPITAL NEURALGIA
  3. LYRICA [Suspect]
     Indication: POST HERPETIC NEURALGIA
     Dosage: 75 MG, 1X/DAY
     Route: 048
     Dates: start: 20101202, end: 20101216

REACTIONS (3)
  - COLITIS ISCHAEMIC [None]
  - URINARY TRACT INFECTION [None]
  - HAEMATURIA [None]
